FAERS Safety Report 24595541 (Version 3)
Quarter: 2025Q1

REPORT INFORMATION
  Report Type: Report from Study
  Country: US (occurrence: US)
  Receive Date: 20241109
  Receipt Date: 20250329
  Transmission Date: 20250408
  Serious: Yes (Other)
  Sender: ABBVIE
  Company Number: US-ABBVIE-5992469

PATIENT
  Age: 79 Year
  Sex: Female

DRUGS (3)
  1. SKYRIZI [Suspect]
     Active Substance: RISANKIZUMAB-RZAA
     Indication: Product used for unknown indication
     Route: 058
     Dates: start: 20240529
  2. SKYRIZI [Suspect]
     Active Substance: RISANKIZUMAB-RZAA
     Route: 058
     Dates: start: 20231030
  3. SKYRIZI [Suspect]
     Active Substance: RISANKIZUMAB-RZAA
     Route: 058
     Dates: start: 20240603

REACTIONS (11)
  - Cerebrovascular accident [Recovering/Resolving]
  - Feeling abnormal [Unknown]
  - Frustration tolerance decreased [Unknown]
  - Musculoskeletal disorder [Unknown]
  - Gait inability [Unknown]
  - Atrial fibrillation [Unknown]
  - Balance disorder [Unknown]
  - Depression [Unknown]
  - Pain [Unknown]
  - Visual impairment [Unknown]
  - Scoliosis [Unknown]

NARRATIVE: CASE EVENT DATE: 20240101
